FAERS Safety Report 5366863-0 (Version None)
Quarter: 2007Q2

REPORT INFORMATION
  Report Type: 
  Country: None (occurrence: None)
  Receive Date: 20070622
  Receipt Date: 20061214
  Transmission Date: 20071010
  Serious: No
  Sender: FDA-Public Use
  Company Number: US-ASTRAZENECA-2006UW28015

PATIENT
  Age: 45 Year
  Sex: Female
  Weight: 54.4 kg

DRUGS (1)
  1. RHINOCORT [Suspect]
     Indication: HYPERSENSITIVITY
     Dosage: 32 MCG 30 METER SPRAY/UNIT
     Route: 045
     Dates: start: 20061213

REACTIONS (1)
  - RHINORRHOEA [None]
